FAERS Safety Report 9490826 (Version 1)
Quarter: 2013Q3

REPORT INFORMATION
  Report Type: Spontaneous
  Country: US (occurrence: None)
  Receive Date: 20130828
  Receipt Date: 20130828
  Transmission Date: 20140515
  Serious: No
  Sender: FDA-Public Use
  Company Number: None

PATIENT
  Age: 85 Year
  Sex: Female
  Weight: 49.9 kg

DRUGS (6)
  1. ALENDRONATE [Suspect]
     Indication: OSTEOPOROSIS
     Dosage: STRENGTH: 70MG  1 PILL 4X PER MONTH  1X PER WEEK FOR 4 WEEKS BY MOUTH?
     Route: 048
     Dates: start: 20130805, end: 20130805
  2. LISINOPRIL [Concomitant]
  3. DORZOLAMIDE HCL - TIMOLOL MALEATE [Concomitant]
  4. ACIPHEX [Concomitant]
  5. MULTIVITAMIN [Concomitant]
  6. ASPIRIN [Concomitant]

REACTIONS (4)
  - Hypoaesthesia [None]
  - Back pain [None]
  - Sensation of foreign body [None]
  - Dysphagia [None]
